FAERS Safety Report 5190414-7 (Version None)
Quarter: 2006Q4

REPORT INFORMATION
  Report Type: 
  Country: None (occurrence: None)
  Receive Date: 20061222
  Receipt Date: 20061213
  Transmission Date: 20070319
  Serious: Yes (Hospitalization)
  Sender: FDA-Public Use
  Company Number: PHHO2006US21222

PATIENT
  Age: 46 Year
  Sex: Female

DRUGS (18)
  1. MYCOPHENOLATE MOFETIL [Suspect]
     Indication: RENAL TRANSPLANT
     Dosage: 1000 MG, BID
     Route: 048
     Dates: start: 20041020
  2. MEDROL [Concomitant]
  3. FUROSEMIDE [Concomitant]
  4. CALCIUM [Concomitant]
  5. PROTONIX [Concomitant]
  6. METOPROLOL SUCCINATE [Concomitant]
  7. LIPITOR [Concomitant]
  8. ASPIRIN [Concomitant]
  9. NIFEDIPINE [Concomitant]
  10. NPH INSULIN [Concomitant]
  11. NOVOLOG [Concomitant]
  12. LISINOPRIL [Concomitant]
  13. NEURONTIN [Concomitant]
  14. DARVON [Concomitant]
  15. K-PHOS NEUTRAL [Concomitant]
  16. MAGNESIUM OXIDE [Concomitant]
  17. NEORAL [Suspect]
     Indication: RENAL TRANSPLANT
     Dosage: 150 MG, BID
     Route: 048
     Dates: start: 20041111, end: 20060209
  18. NEORAL [Suspect]
     Dosage: 125 MG, BID
     Route: 048
     Dates: start: 20060210

REACTIONS (6)
  - CHEST PAIN [None]
  - DIZZINESS [None]
  - NAUSEA [None]
  - PALPITATIONS [None]
  - VENTRICULAR EXTRASYSTOLES [None]
  - VOMITING [None]
